FAERS Safety Report 6398929-0 (Version None)
Quarter: 2009Q4

REPORT INFORMATION
  Report Type: 
  Country: None (occurrence: None)
  Receive Date: 20091013
  Receipt Date: 20091006
  Transmission Date: 20100525
  Serious: Yes (Other)
  Sender: FDA-Public Use
  Company Number: FR-ELI_LILLY_AND_COMPANY-FR200910001020

PATIENT
  Sex: Female

DRUGS (3)
  1. ALIMTA [Suspect]
     Indication: LUNG ADENOCARCINOMA METASTATIC
     Dosage: 750 MG, UNK
     Route: 042
     Dates: start: 20090506, end: 20090501
  2. CISPLATIN [Concomitant]
     Indication: LUNG ADENOCARCINOMA METASTATIC
     Dosage: 75 MG/M2, UNK
     Route: 042
     Dates: start: 20090506
  3. LAMALINE [Concomitant]
     Dosage: 2-3DSGF
     Dates: start: 20090523, end: 20090526

REACTIONS (1)
  - HEPATITIS [None]
